FAERS Safety Report 6828304-3 (Version None)
Quarter: 2010Q3

REPORT INFORMATION
  Report Type: 
  Country: None (occurrence: None)
  Receive Date: 20100709
  Receipt Date: 20070202
  Transmission Date: 20110219
  Serious: No
  Sender: FDA-Public Use
  Company Number: US-PFIZER INC-2007010261

PATIENT
  Sex: Female
  Weight: 72.57 kg

DRUGS (4)
  1. CHANTIX [Suspect]
     Indication: SMOKING CESSATION THERAPY
     Dates: start: 20070101
  2. LEXAPRO [Concomitant]
     Indication: DEPRESSION
  3. XANAX [Concomitant]
  4. ALLERGY MEDICATION [Concomitant]

REACTIONS (2)
  - HEADACHE [None]
  - VERTIGO [None]
